FAERS Safety Report 4632392-2 (Version None)
Quarter: 2005Q2

REPORT INFORMATION
  Report Type: 
  Country: None (occurrence: None)
  Receive Date: 20050411
  Receipt Date: 20050316
  Transmission Date: 20051028
  Serious: Yes (Hospitalization)
  Sender: FDA-Public Use
  Company Number: JP-BRISTOL-MYERS SQUIBB COMPANY-12902375

PATIENT
  Age: 32 Year
  Sex: Male

DRUGS (4)
  1. ENDOXAN [Suspect]
     Indication: LYMPHOMA
     Route: 041
     Dates: start: 20041228, end: 20050210
  2. ADRIACIN [Suspect]
     Indication: LYMPHOMA
     Route: 041
     Dates: start: 20041228, end: 20050210
  3. ONCOVIN [Suspect]
     Indication: LYMPHOMA
     Route: 042
     Dates: start: 20041228, end: 20050210
  4. RITUXAN [Suspect]
     Indication: LYMPHOMA
     Route: 041
     Dates: end: 20050210

REACTIONS (1)
  - INTERSTITIAL LUNG DISEASE [None]
